FAERS Safety Report 13005420 (Version 2)
Quarter: 2016Q4

REPORT INFORMATION
  Report Type: Spontaneous
  Country: GB (occurrence: GB)
  Receive Date: 20161207
  Receipt Date: 20161214
  Transmission Date: 20170207
  Serious: Yes (Other)
  Sender: FDA-Public Use
  Company Number: GB-AMGEN-GBRSP2016171067

PATIENT
  Age: 18 Year
  Sex: Male
  Weight: 86.5 kg

DRUGS (1)
  1. NPLATE [Suspect]
     Active Substance: ROMIPLOSTIM
     Indication: IMMUNE THROMBOCYTOPENIC PURPURA
     Dosage: 250 MCG (3MCG/KG), QWK
     Route: 058
     Dates: start: 20161109, end: 20161130

REACTIONS (12)
  - Anxiety [Not Recovered/Not Resolved]
  - Insomnia [Not Recovered/Not Resolved]
  - Listless [Not Recovered/Not Resolved]
  - Presyncope [Unknown]
  - Headache [Recovered/Resolved]
  - Dehydration [Unknown]
  - Decreased appetite [Not Recovered/Not Resolved]
  - Malaise [Unknown]
  - Photophobia [Unknown]
  - Depression [Not Recovered/Not Resolved]
  - Platelet count abnormal [Unknown]
  - Lethargy [Unknown]

NARRATIVE: CASE EVENT DATE: 201611
